FAERS Safety Report 6380485-4 (Version None)
Quarter: 2009Q3

REPORT INFORMATION
  Report Type: 
  Country: None (occurrence: None)
  Receive Date: 20090929
  Receipt Date: 20090717
  Transmission Date: 20100115
  Serious: No
  Sender: FDA-Public Use
  Company Number: US-BAYER-200927025NA

PATIENT
  Sex: Female

DRUGS (1)
  1. LEUKINE [Suspect]
     Indication: MALIGNANT MELANOMA
     Dosage: DAYS 1-14 EVERY 28 DAYS

REACTIONS (3)
  - BURNING SENSATION [None]
  - INJECTION SITE URTICARIA [None]
  - PRURITUS [None]
